FAERS Safety Report 24450892 (Version 1)
Quarter: 2024Q4

REPORT INFORMATION
  Report Type: Spontaneous
  Country: US (occurrence: US)
  Receive Date: 20241017
  Receipt Date: 20241017
  Transmission Date: 20250115
  Serious: Yes (Life-Threatening, Hospitalization)
  Sender: MYLAN
  Company Number: US-MYLANLABS-2024M1093249

PATIENT
  Age: 31 Year
  Sex: Female

DRUGS (8)
  1. ACETYLCYSTEINE [Suspect]
     Active Substance: ACETYLCYSTEINE
     Indication: Respiratory fume inhalation disorder
     Dosage: UNK
     Route: 065
  2. ACETYLCYSTEINE [Suspect]
     Active Substance: ACETYLCYSTEINE
     Indication: Traumatic lung injury
  3. HEPARIN [Suspect]
     Active Substance: HEPARIN SODIUM
     Indication: Respiratory fume inhalation disorder
     Dosage: UNK; BY NEBULISATION
     Route: 065
  4. HEPARIN [Suspect]
     Active Substance: HEPARIN SODIUM
     Indication: Traumatic lung injury
  5. ALBUTEROL [Suspect]
     Active Substance: ALBUTEROL
     Indication: Respiratory fume inhalation disorder
     Dosage: UNK
     Route: 065
  6. ALBUTEROL [Suspect]
     Active Substance: ALBUTEROL
     Indication: Traumatic lung injury
  7. ALBUMIN HUMAN [Concomitant]
     Active Substance: ALBUMIN HUMAN
     Indication: Urine output decreased
     Dosage: UNK; TWO DOSES
     Route: 065
  8. HYDROXOCOBALAMIN [Concomitant]
     Active Substance: HYDROXOCOBALAMIN
     Indication: Vitamin supplementation
     Dosage: UNK; ONE DOSE
     Route: 065

REACTIONS (2)
  - Drug ineffective for unapproved indication [Unknown]
  - Off label use [Unknown]
